FAERS Safety Report 10233897 (Version 1)
Quarter: 2014Q1

REPORT INFORMATION
  Report Type: Spontaneous
  Country: US (occurrence: None)
  Receive Date: 20140306
  Receipt Date: 20140306
  Transmission Date: 20141002
  Serious: Yes (Other)
  Sender: FDA-Public Use
  Company Number: 163-21880-13113376

PATIENT
  Age: 50 Year
  Sex: Female
  Weight: 77.57 kg

DRUGS (9)
  1. REVLIMID (LENALIDOMIDE) (25 MILLIGRAM, CAPSULES) [Suspect]
     Indication: PLASMA CELL MYELOMA
     Route: 048
     Dates: start: 201308, end: 2013
  2. AMLODIPINE BESYLATE (AMLODIPINE BESILATE) [Concomitant]
  3. DEXAMETHASONE (DEXAMETHASONE) [Concomitant]
  4. MAGNESIUM (MAGNESIUM) [Concomitant]
  5. DOCUSATE SODIUM (DOCUSATE SODIUM) [Concomitant]
  6. METOPROLOL SUCCINATE (METOPROLOL SUCCINATE) [Concomitant]
  7. OXYCODONE HCL (OXYCODONE HYDROCHLORIDE) [Concomitant]
  8. ASPIRINE (ACETYLSALICYLIC ACID) [Concomitant]
  9. IMODIUM (LOPERAMIDE HYDROCHLORIDE) [Concomitant]

REACTIONS (8)
  - Plasmacytoma [None]
  - Bone pain [None]
  - Back pain [None]
  - Night sweats [None]
  - Diarrhoea [None]
  - Rash [None]
  - Headache [None]
  - Pain in extremity [None]
